FAERS Safety Report 9827782 (Version 1)
Quarter: 2013Q4

REPORT INFORMATION
  Report Type: Spontaneous
  Country: US (occurrence: None)
  Receive Date: 20131120
  Receipt Date: 20131120
  Transmission Date: 20140711
  Serious: Yes (Other)
  Sender: FDA-Public Use
  Company Number: 1000048757

PATIENT
  Age: 43 Year
  Sex: Female

DRUGS (3)
  1. VIIBRYD [Suspect]
     Route: 048
     Dates: start: 2012, end: 2012
  2. VIIBRYD [Suspect]
     Route: 048
     Dates: start: 2012
  3. STEROIDS (NOS) (STEROIDS) (STEROIDS) [Concomitant]

REACTIONS (1)
  - Arthralgia [None]
